FAERS Safety Report 7202498-2 (Version None)
Quarter: 2010Q4

REPORT INFORMATION
  Report Type: 
  Country: None (occurrence: None)
  Receive Date: 20101229
  Receipt Date: 20101223
  Transmission Date: 20110411
  Serious: Yes (Hospitalization)
  Sender: FDA-Public Use
  Company Number: PHHY2010IT80362

PATIENT
  Age: 63 Year
  Sex: Male

DRUGS (4)
  1. STALEVO [Suspect]
     Indication: PARKINSON'S DISEASE
     Dosage: 125 MG/31.25 MG/200 MG
     Route: 048
     Dates: start: 20100601
  2. STALEVO [Suspect]
     Dosage: 10 TABLETS
     Route: 048
     Dates: start: 20101104
  3. REQUIP [Concomitant]
  4. SIRIO [Concomitant]

REACTIONS (3)
  - DELIRIUM [None]
  - DRUG ABUSE [None]
  - PSYCHOTIC DISORDER [None]
